FAERS Safety Report 15868996 (Version 6)
Quarter: 2019Q2

REPORT INFORMATION
  Report Type: Report from Study
  Country: FR (occurrence: FR)
  Receive Date: 20190125
  Receipt Date: 20190617
  Transmission Date: 20190711
  Serious: Yes (Hospitalization, Disabling, Other)
  Sender: FDA-Public Use
  Company Number: FR-MYLANLABS-2018M1025784

PATIENT
  Age: 78 Year
  Sex: Female
  Weight: 60 kg

DRUGS (22)
  1. CYPROTERONE [Suspect]
     Active Substance: CYPROTERONE
     Indication: PRODUCT USED FOR UNKNOWN INDICATION
     Dosage: 0.5 DOSAGE FORM, QD,? TABLET/D FOR 21 DAYS PER MONTH
     Route: 048
     Dates: start: 20140818
  2. LENALIDOMIDE [Suspect]
     Active Substance: LENALIDOMIDE
     Indication: PLASMA CELL MYELOMA
     Dosage: 25 MG, QD
     Route: 048
     Dates: start: 20180122, end: 20180202
  3. MLN 9708 [Suspect]
     Active Substance: IXAZOMIB
     Indication: PLASMA CELL MYELOMA
     Dosage: 4 MG, 1/WEEK
     Route: 048
     Dates: start: 20180124
  4. CYPROTERONE [Suspect]
     Active Substance: CYPROTERONE
     Dosage: 0.5 DOSAGE FORM, QD,? TABLET/D FOR 21 DAYS PER MONTH
     Route: 048
     Dates: end: 20100920
  5. ALLOPURINOL. [Suspect]
     Active Substance: ALLOPURINOL
     Indication: PRODUCT USED FOR UNKNOWN INDICATION
     Dosage: 300 MILLIGRAM, QD
     Route: 065
     Dates: start: 20171230, end: 20180111
  6. REVLIMID [Suspect]
     Active Substance: LENALIDOMIDE
     Indication: PLASMA CELL MYELOMA
     Dosage: 25 MILLIGRAM, QD
     Route: 048
     Dates: start: 20180122
  7. CIPROFLOXACINE                     /00697201/ [Concomitant]
     Active Substance: CIPROFLOXACIN
     Indication: INFECTION
     Dosage: 1 GRAM, QD
     Route: 048
     Dates: start: 20180126, end: 20180131
  8. DEXAMETHASONE. [Suspect]
     Active Substance: DEXAMETHASONE
     Indication: PLASMA CELL MYELOMA
     Dosage: 40 MILLIGRAM, QW
     Route: 048
     Dates: start: 20180122
  9. CYPROTERONE [Suspect]
     Active Substance: CYPROTERONE
     Dosage: 0.5 DOSAGE FORM, QD,? TABLET/D FOR 21 DAYS PER MONTH
     Route: 048
     Dates: start: 20161124
  10. SPIRAMYCIN [Suspect]
     Active Substance: SPIRAMYCIN
     Indication: PRODUCT USED FOR UNKNOWN INDICATION
     Dosage: 1.5 UNK, UNK
     Route: 065
     Dates: start: 20180207, end: 20180208
  11. CYPROTERONE [Suspect]
     Active Substance: CYPROTERONE
     Dosage: 0.5 DOSAGE FORM, QD,? TABLET/D FOR 21 DAYS PER MONTH
     Route: 048
     Dates: start: 20130816
  12. CYPROTERONE [Suspect]
     Active Substance: CYPROTERONE
     Dosage: 0.5 DOSAGE FORM, QD,? TABLET/D FOR 21 DAYS PER MONTH
     Route: 048
     Dates: start: 2008
  13. ESTRADIOL. [Suspect]
     Active Substance: ESTRADIOL
     Dosage: 1 DOSAGE FORM, QD,FOR 21 DAYS PER MONTH
     Route: 048
  14. IXAZOMIB [Suspect]
     Active Substance: IXAZOMIB
     Indication: PLASMA CELL MYELOMA
     Dosage: 4 MILLIGRAM, QW
     Route: 048
     Dates: start: 20180124
  15. VENLAFAXINE [Concomitant]
     Active Substance: VENLAFAXINE HYDROCHLORIDE
     Indication: DEPRESSION
     Dosage: UNK, QD
     Route: 065
  16. BIPRETERAX                         /01421201/ [Concomitant]
     Active Substance: INDAPAMIDE\PERINDOPRIL ERBUMINE
     Indication: HYPERTENSION
     Dosage: UNK, QD
     Route: 065
  17. CYPROTERONE [Suspect]
     Active Substance: CYPROTERONE
     Dosage: 0.5 DOSAGE FORM, QD,? TABLET/D FOR 21 DAYS PER MONTH
     Route: 048
     Dates: start: 20100820
  18. ESTRADIOL. [Suspect]
     Active Substance: ESTRADIOL
     Indication: PRODUCT USED FOR UNKNOWN INDICATION
     Dosage: 1 DOSAGE FORM, QD
     Route: 048
     Dates: start: 2008
  19. BACTRIM [Suspect]
     Active Substance: SULFAMETHOXAZOLE\TRIMETHOPRIM
     Indication: PRODUCT USED FOR UNKNOWN INDICATION
     Dosage: UNK
     Route: 065
  20. REVLIMID [Suspect]
     Active Substance: LENALIDOMIDE
     Dosage: 15 MILLIGRAM, QD
     Route: 048
     Dates: start: 20180122
  21. AUGMENTAN                          /00756801/ [Concomitant]
     Active Substance: AMOXICILLIN\CLAVULANATE POTASSIUM
     Indication: INFECTION
     Dosage: 3 GRAM, QD(1 G, TID)
     Route: 048
     Dates: start: 20180126, end: 20180202
  22. DOLIPRANE [Concomitant]
     Active Substance: ACETAMINOPHEN
     Indication: PAIN
     Dosage: UNK
     Route: 065

REACTIONS (39)
  - Gastroenteritis [Recovered/Resolved]
  - Plasma cell myeloma [Recovering/Resolving]
  - Cognitive disorder [Unknown]
  - Coordination abnormal [Not Recovered/Not Resolved]
  - Renal failure [Recovering/Resolving]
  - Burning sensation [Recovered/Resolved]
  - Staphylococcal sepsis [Recovered/Resolved]
  - Paraesthesia [Not Recovered/Not Resolved]
  - Aphasia [Unknown]
  - Hyperthermia [Recovered/Resolved]
  - Cheilitis [Unknown]
  - Condition aggravated [Recovering/Resolving]
  - Diplopia [Not Recovered/Not Resolved]
  - Muscular weakness [Not Recovered/Not Resolved]
  - Mucosal inflammation [Recovered/Resolved]
  - Lung infection [Recovering/Resolving]
  - Hepatocellular injury [Recovering/Resolving]
  - Nervous system disorder [Unknown]
  - Gait disturbance [Not Recovered/Not Resolved]
  - Fatigue [Not Recovered/Not Resolved]
  - Pyrexia [Recovered/Resolved]
  - Facial paralysis [Not Recovered/Not Resolved]
  - Language disorder [Unknown]
  - Weight increased [Not Recovered/Not Resolved]
  - Eye haematoma [Unknown]
  - Toxic skin eruption [Recovered/Resolved]
  - Hepatic failure [Recovering/Resolving]
  - Weight decreased [Recovered/Resolved]
  - Memory impairment [Unknown]
  - Hemiplegia [Not Recovered/Not Resolved]
  - Balance disorder [Not Recovered/Not Resolved]
  - Disorientation [Unknown]
  - Infection [Recovered/Resolved]
  - Anaemia [Not Recovered/Not Resolved]
  - Vomiting [Recovered/Resolved]
  - Dysarthria [Not Recovered/Not Resolved]
  - Meningioma [Not Recovered/Not Resolved]
  - Hemiparaesthesia [Not Recovered/Not Resolved]
  - Rash [Recovered/Resolved]

NARRATIVE: CASE EVENT DATE: 2017
